FAERS Safety Report 8259807-5 (Version None)
Quarter: 2012Q2

REPORT INFORMATION
  Report Type: 
  Country: None (occurrence: None)
  Receive Date: 20120404
  Receipt Date: 20120328
  Transmission Date: 20120825
  Serious: Yes (Hospitalization)
  Sender: FDA-Public Use
  Company Number: US-BAYER-2012-030751

PATIENT
  Age: 93 Year
  Sex: Male
  Weight: 82 kg

DRUGS (3)
  1. MIRALAX [Concomitant]
  2. MAGNESIUM HYDROXIDE TAB [Suspect]
     Indication: CONSTIPATION
     Dosage: 2-3 CAPS FULL/ DAY
     Route: 048
     Dates: end: 20120319
  3. PHILLIPS' MILK OF MAGNESIA LIQUID ORIGINAL [Suspect]
     Indication: CONSTIPATION
     Route: 048

REACTIONS (4)
  - HEART RATE IRREGULAR [None]
  - PRODUCT QUALITY ISSUE [None]
  - CONSTIPATION [None]
  - DYSPNOEA [None]
